FAERS Safety Report 16334988 (Version 1)
Quarter: 2019Q2

REPORT INFORMATION
  Report Type: Report from Study
  Country: MX (occurrence: MX)
  Receive Date: 20190520
  Receipt Date: 20190520
  Transmission Date: 20190711
  Serious: Yes (Death, Hospitalization, Other)
  Sender: FDA-Public Use
  Company Number: MX-UCBSA-2019020229

PATIENT
  Age: 72 Year
  Sex: Female
  Weight: 60 kg

DRUGS (11)
  1. NEO-MELUBRINA [Concomitant]
     Indication: BODY TEMPERATURE INCREASED
     Dosage: 10 MILLILITER, 4X/DAY (QID)
  2. LYRICA [Concomitant]
     Active Substance: PREGABALIN
     Indication: MUSCLE RIGIDITY
     Dosage: 2 MILLILITER, ONCE DAILY (QD)
     Dates: start: 20190224, end: 20190426
  3. LEVOFLOXACINA [Concomitant]
     Active Substance: LEVOFLOXACIN
     Indication: URINARY TRACT INFECTION
     Dosage: UNK
     Route: 042
     Dates: start: 20190421, end: 20190425
  4. NEO-MELUBRINA [Concomitant]
     Indication: PAIN
  5. MELATONIN [Concomitant]
     Active Substance: MELATONIN
  6. BIPERIDEN [Concomitant]
     Active Substance: BIPERIDEN
  7. ROTIGOTINE [Suspect]
     Active Substance: ROTIGOTINE
     Dosage: 4 MILLIGRAM, ONCE DAILY (QD)
     Route: 062
     Dates: start: 2019, end: 20190426
  8. AKINETON [Concomitant]
     Active Substance: BIPERIDEN HYDROCHLORIDE
     Indication: TREMOR
  9. INSULIN RAPID [Concomitant]
     Active Substance: INSULIN NOS
  10. ROTIGOTINE [Suspect]
     Active Substance: ROTIGOTINE
     Indication: PARKINSON^S DISEASE
     Dosage: 2 MILLIGRAM, ONCE DAILY (QD)
     Route: 062
     Dates: start: 201902, end: 2019
  11. AKINETON [Concomitant]
     Active Substance: BIPERIDEN HYDROCHLORIDE
     Indication: MUSCLE RIGIDITY
     Dosage: 0.5 TABLET IN THE MORNING AND 1 TABLET AT NIGHT, 2X/DAY (BID)
     Route: 048
     Dates: start: 20190224, end: 20190426

REACTIONS (4)
  - Respiratory failure [Fatal]
  - Blood glucose increased [Fatal]
  - Urinary tract infection [Not Recovered/Not Resolved]
  - Chills [Unknown]

NARRATIVE: CASE EVENT DATE: 2019
